FAERS Safety Report 8137414-2 (Version None)
Quarter: 2012Q1

REPORT INFORMATION
  Report Type: 
  Country: None (occurrence: None)
  Receive Date: 20120215
  Receipt Date: 20120207
  Transmission Date: 20120608
  Serious: Yes (Other)
  Sender: FDA-Public Use
  Company Number: BR-US-EMD SERONO, INC.-230396J10BRA

PATIENT
  Sex: Female

DRUGS (4)
  1. REBIF [Suspect]
     Dates: start: 20060508, end: 20090901
  2. REBIF [Suspect]
     Dates: start: 20090901
  3. REBIF [Suspect]
     Route: 058
  4. REBIF [Suspect]
     Indication: RELAPSING-REMITTING MULTIPLE SCLEROSIS
     Dates: start: 20060123, end: 20060508

REACTIONS (8)
  - INJECTION SITE PAIN [None]
  - NAUSEA [None]
  - INJECTION SITE ERYTHEMA [None]
  - INJECTION SITE REACTION [None]
  - ASTHENIA [None]
  - OPTIC NEURITIS [None]
  - SOMNOLENCE [None]
  - PAIN [None]
